FAERS Safety Report 8398350-X (Version None)
Quarter: 2012Q2

REPORT INFORMATION
  Report Type: 
  Country: None (occurrence: None)
  Receive Date: 20120531
  Receipt Date: 20120521
  Transmission Date: 20120825
  Serious: Yes (Other)
  Sender: FDA-Public Use
  Company Number: US-ELI_LILLY_AND_COMPANY-US201205007478

PATIENT
  Age: 25 Year
  Sex: Female

DRUGS (5)
  1. KLONOPIN [Concomitant]
  2. CYMBALTA [Suspect]
     Indication: DEPRESSION
     Dosage: 90 MG, UNKNOWN
  3. CYMBALTA [Suspect]
     Dosage: 60 MG, UNKNOWN
  4. LAMICTAL [Concomitant]
  5. CYMBALTA [Suspect]
     Dosage: 30 MG, UNKNOWN

REACTIONS (3)
  - DIARRHOEA [None]
  - WEIGHT DECREASED [None]
  - JAUNDICE [None]
